FAERS Safety Report 5876038-4 (Version None)
Quarter: 2008Q3

REPORT INFORMATION
  Report Type: 
  Country: None (occurrence: None)
  Receive Date: 20080908
  Receipt Date: 20080908
  Transmission Date: 20090109
  Serious: Yes (Hospitalization)
  Sender: FDA-Public Use
  Company Number: None

PATIENT
  Age: 73 Year
  Sex: Male
  Weight: 70.6 kg

DRUGS (9)
  1. ERTAPENEM 1 GRAM MERCK [Suspect]
     Indication: EMPYEMA
     Dosage: 1000 MG Q24TH IV BOLU, 2 DOSES OVER 2 DAYS
     Route: 040
     Dates: start: 20080905, end: 20080906
  2. ERTAPENEM 1 GRAM MERCK [Suspect]
     Indication: LUNG ABSCESS
     Dosage: 1000 MG Q24TH IV BOLU, 2 DOSES OVER 2 DAYS
     Route: 040
     Dates: start: 20080905, end: 20080906
  3. AMIODARONE HCL [Concomitant]
  4. LASIX [Concomitant]
  5. INSULIN GLARGINE [Concomitant]
  6. DUONEB [Concomitant]
  7. LEVOTHYROXINE SODIUM [Concomitant]
  8. OMEPRAZOLE [Concomitant]
  9. VICODIN [Concomitant]

REACTIONS (6)
  - CARDIO-RESPIRATORY ARREST [None]
  - FAECAL INCONTINENCE [None]
  - GRAND MAL CONVULSION [None]
  - HEADACHE [None]
  - POSTICTAL STATE [None]
  - URINARY INCONTINENCE [None]
